FAERS Safety Report 7383947-6 (Version None)
Quarter: 2011Q1

REPORT INFORMATION
  Report Type: 
  Country: None (occurrence: None)
  Receive Date: 20110330
  Receipt Date: 20101220
  Transmission Date: 20110831
  Serious: No
  Sender: FDA-Public Use
  Company Number: US-MYLANLABS-2010S1023575

PATIENT
  Sex: Female

DRUGS (2)
  1. LAXATIVE WITH SENNA [Concomitant]
     Indication: CONSTIPATION
  2. TOPIRAMATE [Suspect]
     Indication: CONVULSION
     Route: 048
     Dates: start: 20101216

REACTIONS (7)
  - HEADACHE [None]
  - COUGH [None]
  - INSOMNIA [None]
  - MUSCLE SPASMS [None]
  - EYE MOVEMENT DISORDER [None]
  - DRY MOUTH [None]
  - CONSTIPATION [None]
